FAERS Safety Report 26040375 (Version 1)
Quarter: 2025Q4

REPORT INFORMATION
  Report Type: Spontaneous
  Country: CN (occurrence: CN)
  Receive Date: 20251113
  Receipt Date: 20251113
  Transmission Date: 20260118
  Serious: Yes (Life-Threatening, Hospitalization)
  Sender: ROCHE
  Company Number: CN-ROCHE-10000430881

PATIENT
  Age: 69 Year
  Sex: Male

DRUGS (1)
  1. TRASTUZUMAB [Suspect]
     Active Substance: TRASTUZUMAB
     Indication: Gastric cancer
     Route: 042
     Dates: start: 20251029, end: 20251029

REACTIONS (8)
  - Hypoaesthesia [Recovering/Resolving]
  - Seizure [Recovering/Resolving]
  - Dizziness [Recovering/Resolving]
  - Loss of consciousness [Recovering/Resolving]
  - Asthenia [Unknown]
  - Cyanosis [Unknown]
  - Disorder of orbit [Unknown]
  - Dry throat [Unknown]

NARRATIVE: CASE EVENT DATE: 20251029
